FAERS Safety Report 11813027 (Version 1)
Quarter: 2015Q4

REPORT INFORMATION
  Report Type: Other
  Country: JP (occurrence: JP)
  Receive Date: 20151209
  Receipt Date: 20151209
  Transmission Date: 20160305
  Serious: No
  Sender: FDA-Public Use
  Company Number: JP-LUPIN PHARMACEUTICALS INC.-2015-02846

PATIENT
  Age: 44 Year
  Sex: Female

DRUGS (2)
  1. GATIFLOXACIN. [Suspect]
     Active Substance: GATIFLOXACIN
     Indication: KERATITIS BACTERIAL
     Route: 065
  2. CEFMENOXIME [Concomitant]
     Active Substance: CEFMENOXIME
     Indication: KERATITIS BACTERIAL
     Route: 065

REACTIONS (1)
  - Impaired healing [Recovered/Resolved]
